FAERS Safety Report 18440400 (Version 2)
Quarter: 2020Q4

REPORT INFORMATION
  Report Type: Report from Study
  Country: BE (occurrence: BE)
  Receive Date: 20201029
  Receipt Date: 20201127
  Transmission Date: 20210114
  Serious: Yes (Hospitalization, Other)
  Sender: FDA-Public Use
  Company Number: BE-BRISTOL-MYERS SQUIBB COMPANY-BMS-2020-075697

PATIENT
  Sex: Female

DRUGS (4)
  1. YERVOY [Suspect]
     Active Substance: IPILIMUMAB
     Indication: MALIGNANT MELANOMA
     Dosage: IV IN THE HOSPITAL Q3WK
     Route: 042
     Dates: start: 20200908
  2. NIVOLUMAB [Suspect]
     Active Substance: NIVOLUMAB
     Indication: MALIGNANT MELANOMA
     Dosage: IV IN THE HOSPITAL Q3WK
     Route: 042
     Dates: start: 20200908
  3. NIVOLUMAB [Suspect]
     Active Substance: NIVOLUMAB
     Dosage: IV IN THE HOSPITAL Q2WK
     Route: 042
     Dates: start: 20201013
  4. OXYNORM [Suspect]
     Active Substance: OXYCODONE HYDROCHLORIDE
     Indication: BACK PAIN
     Dosage: IF NEEDED
     Route: 065

REACTIONS (13)
  - Chromatopsia [Not Recovered/Not Resolved]
  - Asthenia [Unknown]
  - Mucous stools [Unknown]
  - Fatigue [Not Recovered/Not Resolved]
  - Diarrhoea [Not Recovered/Not Resolved]
  - Vomiting [Unknown]
  - Back pain [Not Recovered/Not Resolved]
  - Insomnia [Unknown]
  - Renal impairment [Not Recovered/Not Resolved]
  - Abdominal discomfort [Not Recovered/Not Resolved]
  - Nausea [Not Recovered/Not Resolved]
  - Abdominal pain [Unknown]
  - Decreased appetite [Recovered/Resolved]
